FAERS Safety Report 24650296 (Version 1)
Quarter: 2024Q4

REPORT INFORMATION
  Report Type: Spontaneous
  Country: US (occurrence: US)
  Receive Date: 20241122
  Receipt Date: 20241122
  Transmission Date: 20250115
  Serious: No
  Sender: ROCHE
  Company Number: US-ROCHE-10000137851

PATIENT
  Age: 42 Year
  Sex: Female
  Weight: 77.11 kg

DRUGS (7)
  1. OCREVUS [Suspect]
     Active Substance: OCRELIZUMAB
     Indication: Relapsing-remitting multiple sclerosis
     Route: 042
     Dates: start: 202207
  2. FLUOXETINE [Concomitant]
     Active Substance: FLUOXETINE HYDROCHLORIDE
  3. UBRELVY [Concomitant]
     Active Substance: UBROGEPANT
     Indication: Migraine
     Dosage: AS NEEDED
  4. NEUPRO [Concomitant]
     Active Substance: ROTIGOTINE
     Dosage: TRANSDERMAL PATCHES
     Route: 062
  5. ADDERALL [Concomitant]
     Active Substance: AMPHETAMINE ASPARTATE\AMPHETAMINE SULFATE\DEXTROAMPHETAMINE SACCHARATE\DEXTROAMPHETAMINE SULFATE
  6. MAGNESIUM [Concomitant]
     Active Substance: MAGNESIUM
  7. IRON [Concomitant]
     Active Substance: IRON

REACTIONS (3)
  - Multiple sclerosis [Unknown]
  - Back pain [Unknown]
  - Fall [Unknown]

NARRATIVE: CASE EVENT DATE: 20241111
